FAERS Safety Report 4723801-9 (Version None)
Quarter: 2005Q3

REPORT INFORMATION
  Report Type: 
  Country: None (occurrence: None)
  Receive Date: 20050725
  Receipt Date: 20050719
  Transmission Date: 20060218
  Serious: Yes (Other)
  Sender: FDA-Public Use
  Company Number: PHEH2005US08104

PATIENT
  Sex: Female

DRUGS (7)
  1. TRILEPTAL [Suspect]
     Indication: BIPOLAR DISORDER
     Dosage: 150 MG, QD
     Route: 048
  2. XANAX [Suspect]
     Indication: ANXIETY
     Dosage: 10 MG, UNK
  3. SONATA [Suspect]
     Indication: SLEEP DISORDER
  4. HALDOL [Suspect]
     Indication: NERVOUSNESS
     Dosage: 10 MG, UNK
  5. SERAX [Suspect]
     Indication: INSOMNIA
  6. LITHIUM [Suspect]
  7. CARBAMAZEPINE [Suspect]
     Indication: BIPOLAR DISORDER

REACTIONS (5)
  - ANXIETY [None]
  - HYSTERECTOMY [None]
  - PANIC DISORDER [None]
  - RENAL DISORDER [None]
  - VOMITING [None]
